FAERS Safety Report 5645775-9 (Version None)
Quarter: 2008Q1

REPORT INFORMATION
  Report Type: 
  Country: None (occurrence: None)
  Receive Date: 20080229
  Receipt Date: 20080219
  Transmission Date: 20080703
  Serious: Yes (Other)
  Sender: FDA-Public Use
  Company Number: US-PFIZER INC-2007104526

PATIENT
  Sex: Female
  Weight: 68 kg

DRUGS (6)
  1. CHANTIX [Suspect]
     Indication: SMOKING CESSATION THERAPY
     Dates: start: 20070822, end: 20071110
  2. LIPITOR [Concomitant]
  3. PREMARIN [Concomitant]
  4. BUPROPION HCL [Concomitant]
  5. FOSAMAX [Concomitant]
  6. CELEBREX [Concomitant]

REACTIONS (9)
  - COMPLICATIONS OF TRANSPLANT SURGERY [None]
  - CONDITION AGGRAVATED [None]
  - FAILURE OF IMPLANT [None]
  - GINGIVAL BLEEDING [None]
  - GINGIVITIS [None]
  - PERIODONTAL DISEASE [None]
  - RESORPTION BONE INCREASED [None]
  - SURGERY [None]
  - TOOTH LOSS [None]
